FAERS Safety Report 6312643-9 (Version None)
Quarter: 2009Q3

REPORT INFORMATION
  Report Type: 
  Country: None (occurrence: None)
  Receive Date: 20090814
  Receipt Date: 20090811
  Transmission Date: 20100115
  Serious: Yes (Hospitalization)
  Sender: FDA-Public Use
  Company Number: 1000007470

PATIENT
  Age: 74 Year
  Sex: Female

DRUGS (7)
  1. CELEXA [Suspect]
     Indication: DEPRESSION
     Dosage: 30 MG (30 MG , 1  IN 1 D), ORAL; 10 MG (10 MG , 1  IN 1 D), ORAL
     Route: 048
     Dates: start: 20070401, end: 20070701
  2. CELEXA [Suspect]
     Indication: DEPRESSION
     Dosage: 30 MG (30 MG , 1  IN 1 D), ORAL; 10 MG (10 MG , 1  IN 1 D), ORAL
     Route: 048
     Dates: start: 20090701, end: 20090723
  3. NAMENDA [Suspect]
     Indication: DEMENTIA ALZHEIMER'S TYPE
     Dosage: ORAL
     Route: 048
     Dates: start: 20090721
  4. ARICEPT [Suspect]
     Indication: DEMENTIA ALZHEIMER'S TYPE
     Dates: start: 20030501, end: 20090723
  5. PRILOSEC [Concomitant]
  6. CALCIUM [Concomitant]
  7. PERCOCET [Concomitant]

REACTIONS (3)
  - DEPRESSION [None]
  - HAEMOLYTIC ANAEMIA [None]
  - SERUM FERRITIN ABNORMAL [None]
